FAERS Safety Report 7150807-5 (Version None)
Quarter: 2010Q4

REPORT INFORMATION
  Report Type: 
  Country: None (occurrence: None)
  Receive Date: 20101126
  Receipt Date: 20101116
  Transmission Date: 20110411
  Serious: Yes (Hospitalization, Other)
  Sender: FDA-Public Use
  Company Number: 2010SP060449

PATIENT
  Age: 15 Year
  Sex: Female
  Weight: 65 kg

DRUGS (1)
  1. DESOGESTREL AND ETHINYL ESTRADIOL [Suspect]
     Indication: PRODUCT USED FOR UNKNOWN INDICATION
     Dosage: 1 DF QD; PO
     Route: 048

REACTIONS (11)
  - BACK PAIN [None]
  - DEEP VEIN THROMBOSIS [None]
  - HEADACHE [None]
  - LASEGUE'S TEST POSITIVE [None]
  - MUSCULOSKELETAL STIFFNESS [None]
  - NAUSEA [None]
  - NECK PAIN [None]
  - PHOTOPHOBIA [None]
  - SCOTOMA [None]
  - SOMNOLENCE [None]
  - VOMITING [None]
